FAERS Safety Report 16923098 (Version 2)
Quarter: 2019Q4

REPORT INFORMATION
  Report Type: Spontaneous
  Country: GB (occurrence: GB)
  Receive Date: 20191016
  Receipt Date: 20191019
  Transmission Date: 20200122
  Serious: Yes (Hospitalization, Disabling, Other)
  Sender: FDA-Public Use
  Company Number: GB-AUROBINDO-AUR-APL-2019-066768

PATIENT
  Age: 64 Year
  Sex: Male
  Weight: 80 kg

DRUGS (9)
  1. DOXYCYCLINE. [Suspect]
     Active Substance: DOXYCYCLINE
     Indication: SINUSITIS
     Dosage: 200 MILLIGRAM, ONCE A DAY, ON THE FIRST DAY, THEN 1X100 MG EACH DAY UNTIL THE COURSE IS FINISHED
     Route: 065
     Dates: start: 20190906, end: 20190906
  2. PREDNISOLONE. [Concomitant]
     Active Substance: PREDNISOLONE
     Indication: ABDOMINAL PAIN
     Dosage: UNK
     Route: 065
  3. MACROGOL [Concomitant]
     Active Substance: POLYETHYLENE GLYCOLS
     Indication: ABDOMINAL PAIN
  4. FEXOFENADINE [Concomitant]
     Active Substance: FEXOFENADINE HYDROCHLORIDE
     Indication: ABDOMINAL PAIN
  5. MACROGOL [Concomitant]
     Active Substance: POLYETHYLENE GLYCOLS
     Indication: GASTROINTESTINAL DISORDER CONGENITAL
     Dosage: UNK
     Route: 065
  6. PREDNISOLONE. [Concomitant]
     Active Substance: PREDNISOLONE
     Indication: GASTROINTESTINAL DISORDER CONGENITAL
  7. FEXOFENADINE [Concomitant]
     Active Substance: FEXOFENADINE HYDROCHLORIDE
     Indication: GASTROINTESTINAL DISORDER CONGENITAL
     Dosage: UNK
     Route: 065
  8. AMOXICILLIN. [Suspect]
     Active Substance: AMOXICILLIN
     Indication: SINUSITIS
     Dosage: 1500 MILLIGRAM, ONCE A DAY,ONE WEEK 500 MG THREE TIMES A DAY.
     Route: 065
     Dates: start: 20190823
  9. DOXYCYCLINE. [Suspect]
     Active Substance: DOXYCYCLINE
     Dosage: 100 MILLIGRAM, ONCE A DAY,1 ? 100 MG TABLET EACH SUBSEQUENT DAY
     Route: 065
     Dates: start: 20190907

REACTIONS (14)
  - Dyspepsia [Unknown]
  - Fatigue [Recovered/Resolved]
  - Enteritis [Recovered/Resolved]
  - Disturbance in attention [Recovered/Resolved with Sequelae]
  - Decreased appetite [Recovered/Resolved]
  - Asthenia [Recovered/Resolved with Sequelae]
  - Abdominal pain upper [Recovered/Resolved]
  - Mood swings [Recovered/Resolved]
  - Exercise tolerance decreased [Recovered/Resolved with Sequelae]
  - Headache [Recovered/Resolved with Sequelae]
  - Sleep disorder [Recovered/Resolved]
  - Vision blurred [Recovered/Resolved with Sequelae]
  - Gastrointestinal sounds abnormal [Unknown]
  - Flatulence [Unknown]

NARRATIVE: CASE EVENT DATE: 20190909
